FAERS Safety Report 11591711 (Version 1)
Quarter: 2015Q4

REPORT INFORMATION
  Report Type: Spontaneous
  Country: US (occurrence: US)
  Receive Date: 20151005
  Receipt Date: 20151005
  Transmission Date: 20160304
  Serious: No
  Sender: FDA-Public Use
  Company Number: US-NOVEN PHARMACEUTICALS, INC.-US2015000476

PATIENT
  Age: 64 Year
  Sex: Female

DRUGS (3)
  1. COMBIPATCH [Suspect]
     Active Substance: ESTRADIOL\NORETHINDRONE ACETATE
     Indication: HOT FLUSH
     Dosage: 0.05/0.14MG, UNKNOWN
     Route: 062
     Dates: start: 201504
  2. COMBIPATCH [Suspect]
     Active Substance: ESTRADIOL\NORETHINDRONE ACETATE
     Indication: NIGHT SWEATS
     Dosage: 0.05/0.14MG, UNKNOWN
     Route: 062
     Dates: end: 20150621
  3. ASPIRIN. [Concomitant]
     Active Substance: ASPIRIN
     Dosage: UNK, PRN

REACTIONS (6)
  - Application site urticaria [Recovering/Resolving]
  - Application site pruritus [Recovering/Resolving]
  - Drug administered at inappropriate site [Not Recovered/Not Resolved]
  - Vomiting [Recovered/Resolved]
  - Urticaria [Recovering/Resolving]
  - Pruritus [Recovering/Resolving]

NARRATIVE: CASE EVENT DATE: 201504
